FAERS Safety Report 7306832-4 (Version None)
Quarter: 2011Q1

REPORT INFORMATION
  Report Type: 
  Country: None (occurrence: None)
  Receive Date: 20110223
  Receipt Date: 20110208
  Transmission Date: 20110831
  Serious: Yes (Other)
  Sender: FDA-Public Use
  Company Number: US-CELGENEUS-163-21880-11022043

PATIENT
  Age: 51 Year
  Sex: Female
  Weight: 43.13 kg

DRUGS (3)
  1. VELCADE [Concomitant]
     Route: 065
  2. REVLIMID [Suspect]
     Route: 048
  3. DEXAMETHASONE [Concomitant]
     Route: 065

REACTIONS (1)
  - ADVERSE DRUG REACTION [None]
